FAERS Safety Report 5139103-5 (Version None)
Quarter: 2006Q4

REPORT INFORMATION
  Report Type: 
  Country: None (occurrence: None)
  Receive Date: 20061030
  Receipt Date: 20060621
  Transmission Date: 20070319
  Serious: Yes (Other)
  Sender: FDA-Public Use
  Company Number: US-GLAXOSMITHKLINE-A0609870A

PATIENT
  Sex: Male

DRUGS (4)
  1. ADVAIR HFA [Suspect]
     Indication: ASTHMA
     Route: 055
  2. STEROID [Concomitant]
  3. ZYRTEC [Concomitant]
  4. RHINOCORT [Concomitant]

REACTIONS (1)
  - ASTHMA [None]
